FAERS Safety Report 8823133 (Version 4)
Quarter: 2013Q2

REPORT INFORMATION
  Report Type: Report from Study
  Country: DE (occurrence: DE)
  Receive Date: 20121003
  Receipt Date: 20130615
  Transmission Date: 20140414
  Serious: Yes (Hospitalization)
  Sender: FDA-Public Use
  Company Number: DE-009507513-1209DEU010783

PATIENT
  Age: 45 Year
  Sex: Female
  Weight: 105.5 kg

DRUGS (4)
  1. TEMOZOLOMIDE [Suspect]
     Indication: GLIOMA
     Dosage: 75 MG/M2, QD
     Route: 048
     Dates: start: 20120903, end: 20120924
  2. TEMOZOLOMIDE [Suspect]
     Dosage: 75 MG/M2, QD
     Route: 048
     Dates: start: 20121107
  3. NAVOBAN [Concomitant]
     Dosage: 5 MG, UNK
     Route: 048
     Dates: start: 20120903, end: 20120924
  4. COTRIM FORTE [Concomitant]
     Indication: ANTIFUNGAL PROPHYLAXIS
     Dosage: UNK
     Route: 048
     Dates: start: 20120903, end: 20120924

REACTIONS (1)
  - Scar [Recovered/Resolved]
